FAERS Safety Report 11922192 (Version 3)
Quarter: 2016Q1

REPORT INFORMATION
  Report Type: Spontaneous
  Country: US (occurrence: US)
  Receive Date: 20160115
  Receipt Date: 20160316
  Transmission Date: 20160526
  Serious: Yes (Other)
  Sender: FDA-Public Use
  Company Number: US-GLAXOSMITHKLINE-US2016002756

PATIENT
  Age: 39 Year
  Sex: Female
  Weight: 59.77 kg

DRUGS (4)
  1. BENLYSTA [Suspect]
     Active Substance: BELIMUMAB
     Dosage: 1472 MG, UNK
     Route: 042
  2. BENLYSTA [Suspect]
     Active Substance: BELIMUMAB
     Dosage: 1472 UNK, UNK
     Route: 042
     Dates: start: 20150129
  3. PREDNISONE. [Suspect]
     Active Substance: PREDNISONE
  4. BENLYSTA [Suspect]
     Active Substance: BELIMUMAB
     Indication: SYSTEMIC LUPUS ERYTHEMATOSUS
     Dosage: 1472 MG, UNK
     Route: 042
     Dates: start: 20150129

REACTIONS (3)
  - Chest pain [Unknown]
  - Urinary retention [Unknown]
  - Constipation [Unknown]

NARRATIVE: CASE EVENT DATE: 20150212
